FAERS Safety Report 7178070-X (Version None)
Quarter: 2010Q4

REPORT INFORMATION
  Report Type: 
  Country: None (occurrence: None)
  Receive Date: 20101220
  Receipt Date: 20101208
  Transmission Date: 20110411
  Serious: Yes (Death, Hospitalization)
  Sender: FDA-Public Use
  Company Number: A0869053A

PATIENT
  Sex: Female
  Weight: 65.9 kg

DRUGS (6)
  1. AVANDIA [Suspect]
     Indication: DIABETES MELLITUS
     Dosage: 4MG PER DAY
     Route: 048
  2. ZOCOR [Concomitant]
  3. AMIODARONE HCL [Concomitant]
  4. HYDROCHLOROTHIAZIDE [Concomitant]
  5. GLUCOTROL [Concomitant]
  6. SYNTHROID [Concomitant]

REACTIONS (3)
  - ACUTE CORONARY SYNDROME [None]
  - CORONARY ARTERY DISEASE [None]
  - DEATH [None]
